FAERS Safety Report 15990908 (Version 3)
Quarter: 2019Q1

REPORT INFORMATION
  Report Type: Spontaneous
  Country: FR (occurrence: FR)
  Receive Date: 20190221
  Receipt Date: 20190225
  Transmission Date: 20190418
  Serious: Yes (Death)
  Sender: FDA-Public Use
  Company Number: FR-ABBVIE-19S-056-2673918-00

PATIENT
  Age: 2 Year
  Sex: Male

DRUGS (2)
  1. SEVORANE [Suspect]
     Active Substance: SEVOFLURANE
     Dosage: DECREASED TO 2.7 - 2.8 MAC
     Route: 055
  2. SEVORANE [Suspect]
     Active Substance: SEVOFLURANE
     Indication: ANAESTHESIA
     Dosage: INDUCTION AT 3 MAC
     Route: 055
     Dates: start: 2015

REACTIONS (7)
  - Off label use [Fatal]
  - Brain injury [Fatal]
  - Cardiac arrest [Fatal]
  - Feeding disorder [Fatal]
  - Apallic syndrome [Fatal]
  - Overdose [Fatal]
  - Bradycardia [Fatal]

NARRATIVE: CASE EVENT DATE: 2015
